FAERS Safety Report 11317029 (Version 2)
Quarter: 2015Q3

REPORT INFORMATION
  Report Type: Report from Study
  Country: PL (occurrence: PL)
  Receive Date: 20150728
  Receipt Date: 20150804
  Transmission Date: 20151125
  Serious: Yes (Death, Hospitalization)
  Sender: FDA-Public Use
  Company Number: PL-AMGEN-POLCT2015009668

PATIENT
  Age: 81 Year
  Sex: Female

DRUGS (7)
  1. NITRENDIPINE [Concomitant]
     Active Substance: NITRENDIPINE
     Dosage: 10 MG, BID
     Route: 048
  2. CARDURAXL [Concomitant]
     Dosage: UNK
     Dates: start: 20140923
  3. DENOSUMAB [Suspect]
     Active Substance: DENOSUMAB
     Indication: OSTEOPOROSIS POSTMENOPAUSAL
     Dosage: 60 MG, Q6MO
     Route: 058
     Dates: start: 20050523, end: 20141114
  4. TORAMIDE [Concomitant]
     Dosage: 5 MG, QD
     Dates: start: 20140923, end: 20141023
  5. FUROSEMIDE. [Concomitant]
     Active Substance: FUROSEMIDE
     Dosage: 40 MG, BID
     Dates: start: 20141024
  6. CONTROLOC                          /01263201/ [Concomitant]
     Dosage: 40 MG, QD
     Dates: start: 20140914
  7. VICEBROL [Concomitant]
     Active Substance: VINPOCETINE
     Dosage: UNK UNK, QD

REACTIONS (5)
  - Haemorrhage [Fatal]
  - Infected skin ulcer [Fatal]
  - Klebsiella infection [Fatal]
  - Pseudomonas infection [Fatal]
  - Pneumonia [Fatal]

NARRATIVE: CASE EVENT DATE: 20141020
